FAERS Safety Report 4694830-9 (Version None)
Quarter: 2005Q2

REPORT INFORMATION
  Report Type: 
  Country: None (occurrence: None)
  Receive Date: 20050620
  Receipt Date: 20050518
  Transmission Date: 20051028
  Serious: Yes (Death, Hospitalization)
  Sender: FDA-Public Use
  Company Number: 2005AP02913

PATIENT
  Age: 30640 Day
  Sex: Male

DRUGS (13)
  1. SEROQUEL [Suspect]
     Indication: INSOMNIA
     Route: 048
     Dates: start: 20050407, end: 20050419
  2. MYSLEE [Suspect]
     Indication: INSOMNIA
     Route: 048
     Dates: start: 20050407, end: 20050419
  3. BLOPRESS [Suspect]
     Indication: CARDIAC FAILURE
     Route: 048
     Dates: start: 20050407, end: 20050419
  4. LOXONIN [Suspect]
     Indication: PAIN
     Route: 048
     Dates: start: 20050414, end: 20050419
  5. MOBIC [Suspect]
     Indication: PAIN
     Route: 048
     Dates: start: 20050414, end: 20050419
  6. NOVASTAN [Suspect]
     Indication: CEREBRAL INFARCTION
     Route: 041
     Dates: start: 20050406, end: 20050413
  7. ASPIRIN [Concomitant]
     Indication: CARDIAC FAILURE
     Route: 048
     Dates: end: 20050419
  8. ASPIRIN [Concomitant]
     Indication: TRANSIENT ISCHAEMIC ATTACK
     Route: 048
     Dates: end: 20050419
  9. WARFARIN SODIUM [Concomitant]
     Indication: TRANSIENT ISCHAEMIC ATTACK
     Route: 048
     Dates: end: 20050419
  10. GASTER [Concomitant]
     Indication: GASTRITIS
     Route: 048
     Dates: end: 20050419
  11. LANIRAPID [Concomitant]
     Indication: CARDIAC FAILURE
     Dosage: HALF A TABLET
     Route: 048
     Dates: end: 20050419
  12. ITOROL [Concomitant]
     Indication: CARDIAC FAILURE
     Route: 048
     Dates: end: 20050419
  13. LASIX [Concomitant]
     Indication: CARDIAC FAILURE
     Route: 048

REACTIONS (5)
  - BLOOD PRESSURE DECREASED [None]
  - CENTRAL VENOUS PRESSURE DECREASED [None]
  - HEPATITIS [None]
  - SEPSIS [None]
  - STAPHYLOCOCCAL INFECTION [None]
